FAERS Safety Report 6187755-3 (Version None)
Quarter: 2009Q2

REPORT INFORMATION
  Report Type: 
  Country: None (occurrence: None)
  Receive Date: 20090511
  Receipt Date: 20090511
  Transmission Date: 20091009
  Serious: Yes (Other)
  Sender: FDA-Public Use
  Company Number: None

PATIENT
  Sex: Female
  Weight: 104.3273 kg

DRUGS (1)
  1. LAMOTRIGINE [Suspect]
     Dosage: 200 MG ONCE QAM PO
     Route: 048
     Dates: start: 20080901, end: 20081212

REACTIONS (2)
  - PRODUCT SUBSTITUTION ISSUE [None]
  - VISUAL ACUITY REDUCED [None]
